FAERS Safety Report 4463703-9 (Version None)
Quarter: 2004Q3

REPORT INFORMATION
  Report Type: 
  Country: None (occurrence: None)
  Receive Date: 20040929
  Receipt Date: 20040914
  Transmission Date: 20050211
  Serious: Yes (Hospitalization)
  Sender: FDA-Public Use
  Company Number: DE_040513603

PATIENT
  Age: 78 Year
  Sex: Male

DRUGS (8)
  1. ZYPREXA [Suspect]
     Indication: BIPOLAR DISORDER
     Dosage: 15 MG DAY
     Route: 045
     Dates: end: 20040101
  2. LAMITRIGINE [Concomitant]
  3. CARBAMAZEPINE [Concomitant]
  4. LASIX [Concomitant]
  5. XIMOVAN (ZOPICLONE) [Concomitant]
  6. EBIXA (MEMANTINE HYDROCHLORIDE) [Concomitant]
  7. TRAMAL (TRAMADOL HDYROCHLORIDE) [Concomitant]
  8. CALCIUM [Concomitant]

REACTIONS (9)
  - ANTIDEPRESSANT DRUG LEVEL ABOVE THERAPEUTIC [None]
  - COGNITIVE DISORDER [None]
  - CONDITION AGGRAVATED [None]
  - DEHYDRATION [None]
  - DEPRESSION [None]
  - FALL [None]
  - FEMORAL NECK FRACTURE [None]
  - MENTAL DISORDER [None]
  - SEDATION [None]
